FAERS Safety Report 11361519 (Version 1)
Quarter: 2015Q3

REPORT INFORMATION
  Report Type: Spontaneous
  Country: FI (occurrence: FI)
  Receive Date: 20150810
  Receipt Date: 20150810
  Transmission Date: 20151125
  Serious: Yes (Hospitalization)
  Sender: FDA-Public Use
  Company Number: FI-BIOGENIDEC-2015BI109620

PATIENT
  Age: 31 Year
  Sex: Female

DRUGS (1)
  1. TECFIDERA [Suspect]
     Active Substance: DIMETHYL FUMARATE
     Indication: RELAPSING-REMITTING MULTIPLE SCLEROSIS
     Route: 048
     Dates: start: 20150617, end: 20150710

REACTIONS (7)
  - Urticaria [Recovered/Resolved]
  - Diplopia [Recovered/Resolved]
  - Cerebrovascular accident [Recovered/Resolved]
  - Vomiting [Recovered/Resolved]
  - Diarrhoea [Recovered/Resolved]
  - Dehydration [Recovered/Resolved]
  - Vertebral artery dissection [Recovered/Resolved]

NARRATIVE: CASE EVENT DATE: 201507
